FAERS Safety Report 7889845-3 (Version None)
Quarter: 2011Q4

REPORT INFORMATION
  Report Type: 
  Country: None (occurrence: None)
  Receive Date: 20111103
  Receipt Date: 20111101
  Transmission Date: 20120403
  Serious: Yes (Other)
  Sender: FDA-Public Use
  Company Number: US-GLAXOSMITHKLINE-A0943718A

PATIENT
  Age: 61 Year
  Sex: Female
  Weight: 103 kg

DRUGS (9)
  1. DUONEB [Concomitant]
  2. EVISTA [Concomitant]
     Dosage: 60MG PER DAY
  3. ALBUTEROL [Concomitant]
     Dosage: 2PUFF SEE DOSAGE TEXT
     Route: 055
  4. XOLAIR [Concomitant]
     Dosage: 225MG EVERY TWO WEEKS
     Route: 058
  5. CELEXA [Concomitant]
     Dosage: 40MG PER DAY
     Route: 065
  6. SINGULAIR [Concomitant]
     Dosage: 10MG AT NIGHT
  7. ADVAIR DISKUS 100/50 [Suspect]
     Indication: ASTHMA
     Route: 055
  8. FEXOFENADINE [Concomitant]
     Dosage: 180MG SEE DOSAGE TEXT
  9. PREDNISONE [Concomitant]
     Dosage: 2MG PER DAY

REACTIONS (2)
  - PRODUCT QUALITY ISSUE [None]
  - ASTHMA [None]
